FAERS Safety Report 26157631 (Version 1)
Quarter: 2025Q4

REPORT INFORMATION
  Report Type: Spontaneous
  Country: US (occurrence: None)
  Receive Date: 20251212
  Receipt Date: 20251212
  Transmission Date: 20260118
  Serious: Yes (Hospitalization, Disabling)
  Sender: FDA-CTU
  Company Number: None

PATIENT
  Age: 8 Year
  Sex: Female
  Weight: 38.25 kg

DRUGS (1)
  1. LUPRON DEPOT-PED [Suspect]
     Active Substance: LEUPROLIDE ACETATE
     Indication: Precocious puberty
     Route: 030
     Dates: start: 20250328

REACTIONS (6)
  - Injected limb mobility decreased [None]
  - Gait disturbance [None]
  - Quality of life decreased [None]
  - Injection site mass [None]
  - Injection site infection [None]
  - Emotional distress [None]

NARRATIVE: CASE EVENT DATE: 20251008
